FAERS Safety Report 6642143-8 (Version None)
Quarter: 2010Q1

REPORT INFORMATION
  Report Type: 
  Country: None (occurrence: None)
  Receive Date: 20100316
  Receipt Date: 20100301
  Transmission Date: 20100710
  Serious: Yes (Life-Threatening, Hospitalization, Disabling)
  Sender: FDA-Public Use
  Company Number: 20100105

PATIENT
  Age: 6 Year
  Sex: Female

DRUGS (2)
  1. CEFTRIAXONE [Suspect]
     Indication: INFECTION PROPHYLAXIS
     Dosage: DOSES ON 2 OCCASIONS
  2. MORPHINE [Concomitant]

REACTIONS (15)
  - BACK PAIN [None]
  - BLOOD PH DECREASED [None]
  - BRAIN INJURY [None]
  - CEREBRAL ISCHAEMIA [None]
  - DRUG SPECIFIC ANTIBODY PRESENT [None]
  - GENERAL PHYSICAL HEALTH DETERIORATION [None]
  - HAEMOGLOBIN DECREASED [None]
  - HAEMOLYSIS [None]
  - INCONTINENCE [None]
  - ISCHAEMIC STROKE [None]
  - MOANING [None]
  - OVERDOSE [None]
  - PULSE ABSENT [None]
  - UNRESPONSIVE TO STIMULI [None]
  - VOMITING [None]
